FAERS Safety Report 8576199-2 (Version None)
Quarter: 2012Q3

REPORT INFORMATION
  Report Type: 
  Country: None (occurrence: None)
  Receive Date: 20120807
  Receipt Date: 20120730
  Transmission Date: 20120928
  Serious: Yes (Other)
  Sender: FDA-Public Use
  Company Number: NL-TEVA-351266ISR

PATIENT
  Age: 82 Year
  Sex: Female

DRUGS (5)
  1. TERBINAFINE HCL [Suspect]
     Indication: ONYCHOMYCOSIS
     Dosage: 250 MILLIGRAM DAILY;
     Route: 048
  2. LISINOPRIL [Concomitant]
     Indication: HYPERTENSION
     Dosage: 5 MILLIGRAM DAILY;
     Route: 065
  3. RISEDRONIC ACID [Concomitant]
     Indication: OSTEOPOROSIS
     Route: 065
  4. COLECALCIFEROL, CALCIUM CARBONATE [Concomitant]
     Indication: OSTEOPOROSIS
     Dosage: 1.25 GRAM DAILY;
     Route: 065
  5. DIPYRIDAMOLE [Concomitant]
     Route: 065

REACTIONS (4)
  - HEARING IMPAIRED [None]
  - ASTHENIA [None]
  - HEADACHE [None]
  - INSOMNIA [None]
